FAERS Safety Report 4708835-2 (Version None)
Quarter: 2005Q3

REPORT INFORMATION
  Report Type: 
  Country: None (occurrence: None)
  Receive Date: 20050705
  Receipt Date: 20050617
  Transmission Date: 20060218
  Serious: Yes (Other)
  Sender: FDA-Public Use
  Company Number: DSA_81339_2005

PATIENT
  Age: 46 Year
  Sex: Male
  Weight: 67 kg

DRUGS (3)
  1. XYREM [Suspect]
     Indication: NARCOLEPSY
     Dosage: 3.5 G TWICE NIGHTLY PO
     Route: 048
     Dates: start: 20041202
  2. ENALAPRIL MALEATE [Concomitant]
  3. SIMVASTATIN [Concomitant]

REACTIONS (8)
  - ABNORMAL BEHAVIOUR [None]
  - DRUG INEFFECTIVE [None]
  - ENURESIS [None]
  - HALLUCINATION [None]
  - METABOLIC DISORDER [None]
  - NAUSEA [None]
  - SCREAMING [None]
  - THIRST [None]
